FAERS Safety Report 5537415-4 (Version None)
Quarter: 2007Q4

REPORT INFORMATION
  Report Type: 
  Country: None (occurrence: None)
  Receive Date: 20071207
  Receipt Date: 20071206
  Transmission Date: 20080405
  Serious: Yes (Hospitalization)
  Sender: FDA-Public Use
  Company Number: B0498393A

PATIENT
  Age: 45 Year
  Sex: Female

DRUGS (4)
  1. ZOPHREN [Suspect]
     Indication: DRUG USE FOR UNKNOWN INDICATION
     Route: 042
     Dates: start: 20071106, end: 20071112
  2. ROCEPHIN [Suspect]
     Route: 065
     Dates: start: 20071106, end: 20071108
  3. INVANZ [Suspect]
     Route: 042
     Dates: start: 20071108
  4. AMIKLIN [Suspect]
     Route: 042
     Dates: start: 20071106

REACTIONS (3)
  - ACUTE GENERALISED EXANTHEMATOUS PUSTULOSIS [None]
  - ERYTHEMA [None]
  - SKIN EXFOLIATION [None]
